FAERS Safety Report 5593377-5 (Version None)
Quarter: 2008Q1

REPORT INFORMATION
  Report Type: 
  Country: None (occurrence: None)
  Receive Date: 20080114
  Receipt Date: 20061010
  Transmission Date: 20080703
  Serious: Yes (Other)
  Sender: FDA-Public Use
  Company Number: 2006VX001786

PATIENT
  Age: 68 Year
  Sex: Female

DRUGS (3)
  1. PROSTIGMIN BROMIDE [Suspect]
     Dosage: 15 MG; PO
     Route: 048
  2. AMPICILLIN [Concomitant]
  3. DEXAMETHASONE TAB [Concomitant]

REACTIONS (1)
  - SKIN HYPERTROPHY [None]
